FAERS Safety Report 7893762-2 (Version None)
Quarter: 2011Q4

REPORT INFORMATION
  Report Type: 
  Country: None (occurrence: None)
  Receive Date: 20111104
  Receipt Date: 20111102
  Transmission Date: 20120403
  Serious: Yes (Life-Threatening)
  Sender: FDA-Public Use
  Company Number: BG-GLAXOSMITHKLINE-Z0012398A

PATIENT
  Sex: Female
  Weight: 83 kg

DRUGS (1)
  1. OFATUMUMAB [Suspect]
     Indication: CHRONIC LYMPHOCYTIC LEUKAEMIA
     Route: 042
     Dates: start: 20111020

REACTIONS (2)
  - BRONCHOSPASM [None]
  - PYREXIA [None]
